FAERS Safety Report 8927556 (Version 2)
Quarter: 2012Q4

REPORT INFORMATION
  Report Type: 
  Country: FR (occurrence: FR)
  Receive Date: 20121127
  Receipt Date: 20121204
  Transmission Date: 20130627
  Serious: Yes (Other)
  Sender: FDA-Public Use
  Company Number: PHHY2012FR107622

PATIENT
  Sex: Female

DRUGS (3)
  1. EXTAVIA [Suspect]
     Indication: MULTIPLE SCLEROSIS
     Dosage: UNK
     Dates: start: 201205
  2. DOLIPRANE [Concomitant]
     Indication: MULTIPLE SCLEROSIS
  3. ADVIL//IBUPROFEN [Concomitant]
     Indication: MULTIPLE SCLEROSIS

REACTIONS (2)
  - Cholelithiasis [Unknown]
  - Abdominal pain [Unknown]
